FAERS Safety Report 17557598 (Version 1)
Quarter: 2020Q1

REPORT INFORMATION
  Report Type: Spontaneous
  Country: CZ (occurrence: CZ)
  Receive Date: 20200318
  Receipt Date: 20200318
  Transmission Date: 20200409
  Serious: Yes (Death, Other)
  Sender: FDA-Public Use
  Company Number: CZ-FRESENIUS KABI-FK202002756

PATIENT
  Age: 77 Year
  Sex: Male

DRUGS (4)
  1. MANNITOL 20% (MANUFACTURER UNKNOWN) [Suspect]
     Active Substance: MANNITOL
     Indication: DRUG THERAPY
     Dosage: UNKNOWN
     Route: 065
  2. DEXAMETHASONE. [Concomitant]
     Active Substance: DEXAMETHASONE
     Indication: DRUG THERAPY
     Dosage: UNKNOWN
     Route: 065
  3. PARACETAMOL [Concomitant]
     Active Substance: ACETAMINOPHEN
     Indication: PRODUCT USED FOR UNKNOWN INDICATION
     Route: 042
  4. METOPROLOL SUCCINATE. [Concomitant]
     Active Substance: METOPROLOL SUCCINATE
     Indication: PRODUCT USED FOR UNKNOWN INDICATION
     Route: 042

REACTIONS (3)
  - Disease progression [Fatal]
  - Tachycardia [Not Recovered/Not Resolved]
  - Hypertension [Not Recovered/Not Resolved]
